FAERS Safety Report 4405304-4 (Version None)
Quarter: 2004Q3

REPORT INFORMATION
  Report Type: 
  Country: None (occurrence: None)
  Receive Date: 20040723
  Receipt Date: 20040714
  Transmission Date: 20050211
  Serious: Yes (Hospitalization)
  Sender: FDA-Public Use
  Company Number: PHBS2004BE09456

PATIENT
  Age: 24 Year
  Sex: Female

DRUGS (7)
  1. CYCLOSPORINE [Suspect]
     Indication: LUNG TRANSPLANT
     Dosage: 150 MG, BID
     Route: 065
  2. MYCOPHENOLATE MOFETIL [Suspect]
     Dosage: 1 G, QD
  3. PREDNISONE [Suspect]
     Dosage: 8 MG/D
  4. ACYCLOVIR [Concomitant]
     Dosage: 800 MG, QID
  5. PANCREATIC ENZYMES [Concomitant]
     Dosage: 300 MG, TID
  6. CALCIUM CARBONATE [Concomitant]
     Dosage: 1 G/D
  7. VITAMIN D3 [Concomitant]

REACTIONS (10)
  - ABDOMINAL TENDERNESS [None]
  - ACUTE ABDOMEN [None]
  - BLOOD CREATININE INCREASED [None]
  - BLOOD UREA INCREASED [None]
  - COLECTOMY PARTIAL [None]
  - ILEOCOLOSTOMY [None]
  - INTESTINAL INFARCTION [None]
  - LARGE INTESTINE PERFORATION [None]
  - LEUKOCYTOSIS [None]
  - PYREXIA [None]
